FAERS Safety Report 14413836 (Version 4)
Quarter: 2018Q2

REPORT INFORMATION
  Report Type: Spontaneous
  Country: US (occurrence: US)
  Receive Date: 20180119
  Receipt Date: 20180423
  Transmission Date: 20180711
  Serious: Yes (Hospitalization, Other)
  Sender: FDA-Public Use
  Company Number: US-009507513-1101USA00246

PATIENT
  Sex: Female
  Weight: 57.15 kg

DRUGS (5)
  1. FOSAMAX [Suspect]
     Active Substance: ALENDRONATE SODIUM
     Indication: OSTEOPOROSIS
     Dosage: 70 MG, QW
     Route: 048
     Dates: start: 200304, end: 20090206
  2. BONIVA [Suspect]
     Active Substance: IBANDRONATE SODIUM
     Indication: OSTEOPOROSIS
     Dosage: 150 MG, UNKNOWN
     Route: 048
     Dates: start: 20061206, end: 20080127
  3. FOSAMAX [Suspect]
     Active Substance: ALENDRONATE SODIUM
     Indication: OSTEOPOROSIS
     Dosage: UNK MG, UNK
     Route: 048
     Dates: start: 2008, end: 200902
  4. FOSAMAX [Suspect]
     Active Substance: ALENDRONATE SODIUM
     Indication: OSTEOPOROSIS
     Dosage: 70 MG, QD
     Route: 048
  5. ALENDRONATE SODIUM. [Suspect]
     Active Substance: ALENDRONATE SODIUM
     Indication: OSTEOPOROSIS
     Dosage: 70 MG, UNKNOWN
     Route: 048
     Dates: start: 2008, end: 200902

REACTIONS (30)
  - Femur fracture [Recovered/Resolved]
  - Limb injury [Unknown]
  - Femur fracture [Recovered/Resolved]
  - Oral disorder [Unknown]
  - Hysterectomy [Unknown]
  - Vitamin D deficiency [Unknown]
  - Overdose [Unknown]
  - Pain in extremity [Unknown]
  - Bone disorder [Unknown]
  - Osteonecrosis [Unknown]
  - Osteogenesis imperfecta [Unknown]
  - Low turnover osteopathy [Unknown]
  - Cough [Unknown]
  - Blood potassium decreased [Unknown]
  - Benign breast neoplasm [Unknown]
  - Anaemia [Unknown]
  - Osteoporosis [Unknown]
  - Pulmonary congestion [Unknown]
  - Foot deformity [Unknown]
  - Patellofemoral pain syndrome [Unknown]
  - Overdose [Unknown]
  - Hypothyroidism [Unknown]
  - Injury [Unknown]
  - Bursitis [Unknown]
  - Osteopenia [Unknown]
  - Arthritis [Unknown]
  - Aortic arteriosclerosis [Unknown]
  - Musculoskeletal pain [Unknown]
  - Neuropathy peripheral [Unknown]
  - Fracture nonunion [Recovered/Resolved]

NARRATIVE: CASE EVENT DATE: 2003
